FAERS Safety Report 10785174 (Version 2)
Quarter: 2015Q1

REPORT INFORMATION
  Report Type: Spontaneous
  Country: US (occurrence: US)
  Receive Date: 20150211
  Receipt Date: 20150226
  Transmission Date: 20150721
  Serious: Yes (Hospitalization)
  Sender: FDA-Public Use
  Company Number: US-MALLINCKRODT-T201501044

PATIENT
  Sex: Male

DRUGS (2)
  1. GABLOFEN [Suspect]
     Active Substance: BACLOFEN
     Indication: MUSCLE SPASTICITY
     Dosage: 1000 MCG/ML, (TITRATION)
     Route: 037
  2. GABLOFEN [Suspect]
     Active Substance: BACLOFEN
     Dosage: 500MCG/ML (TITRATION)
     Route: 037
     Dates: start: 201406, end: 20140905

REACTIONS (2)
  - Rectal haemorrhage [Unknown]
  - Immune thrombocytopenic purpura [Unknown]
